FAERS Safety Report 4665656-7 (Version None)
Quarter: 2005Q2

REPORT INFORMATION
  Report Type: 
  Country: None (occurrence: None)
  Receive Date: 20050518
  Receipt Date: 20050518
  Transmission Date: 20051028
  Serious: Yes (Hospitalization)
  Sender: FDA-Public Use
  Company Number: None

PATIENT
  Age: 71 Year
  Sex: Male
  Weight: 77.3 kg

DRUGS (10)
  1. QUETIAPINE FUMARATE [Suspect]
     Indication: SCHIZOAFFECTIVE DISORDER
     Dosage: 100MG  HS ORAL
     Route: 048
     Dates: start: 20050328, end: 20050329
  2. QUETIAPINE FUMARATE [Suspect]
     Indication: SCHIZOPHRENIA
     Dosage: 100MG  HS ORAL
     Route: 048
     Dates: start: 20050328, end: 20050329
  3. SELEGILINE HCL [Concomitant]
  4. PRAMIPEXOLE [Concomitant]
  5. METOPROLOL [Concomitant]
  6. CLONAZEPAM [Concomitant]
  7. DIGOXIN [Concomitant]
  8. SINEMET CR [Concomitant]
  9. ALBUTEROL [Concomitant]
  10. ATORVASTATIN CALCIUM [Concomitant]

REACTIONS (2)
  - HYPOTENSION [None]
  - MIOSIS [None]
